FAERS Safety Report 6572243-2 (Version None)
Quarter: 2010Q1

REPORT INFORMATION
  Report Type: 
  Country: None (occurrence: None)
  Receive Date: 20100205
  Receipt Date: 20100127
  Transmission Date: 20100710
  Serious: Yes (Other)
  Sender: FDA-Public Use
  Company Number: PHHY2010FR05121

PATIENT
  Sex: Male

DRUGS (5)
  1. NEORAL [Suspect]
     Indication: NEPHROTIC SYNDROME
     Dosage: UNK
     Dates: start: 20070701, end: 20081201
  2. TAHOR [Suspect]
  3. TRIATEC [Suspect]
     Indication: HYPERTENSION
  4. OMEPRAZOLE [Suspect]
  5. SPECIAFOLDINE [Suspect]

REACTIONS (4)
  - GLOMERULOSCLEROSIS [None]
  - HYPOSPERMIA [None]
  - INFERTILITY [None]
  - RENAL FAILURE ACUTE [None]
